FAERS Safety Report 13485314 (Version 1)
Quarter: 2017Q2

REPORT INFORMATION
  Report Type: Spontaneous
  Country: GB (occurrence: GB)
  Receive Date: 20170426
  Receipt Date: 20170426
  Transmission Date: 20170830
  Serious: Yes (Hospitalization)
  Sender: FDA-Public Use
  Company Number: GB-TEVA-761207ACC

PATIENT
  Age: 79 Year
  Sex: Female
  Weight: 88 kg

DRUGS (12)
  1. WARFARIN [Concomitant]
     Active Substance: WARFARIN
  2. METHOTREXATE. [Suspect]
     Active Substance: METHOTREXATE
     Indication: RHEUMATOID ARTHRITIS
     Route: 048
  3. BIMATOPROST. [Concomitant]
     Active Substance: BIMATOPROST
  4. FOLIC ACID. [Concomitant]
     Active Substance: FOLIC ACID
  5. DOXYCYCLINE. [Concomitant]
     Active Substance: DOXYCYCLINE
  6. GTN [Concomitant]
     Active Substance: NITROGLYCERIN
  7. LOSARTAN. [Concomitant]
     Active Substance: LOSARTAN
  8. DORZOLAMIDE [Concomitant]
     Active Substance: DORZOLAMIDE
     Route: 050
  9. ATORVASTATIN [Concomitant]
     Active Substance: ATORVASTATIN
  10. CLARITHROMYCIN. [Concomitant]
     Active Substance: CLARITHROMYCIN
  11. PARACETAMOL [Concomitant]
     Active Substance: ACETAMINOPHEN
  12. PREDNISOLONE. [Concomitant]
     Active Substance: PREDNISOLONE

REACTIONS (3)
  - Chest pain [Unknown]
  - Pericarditis [Not Recovered/Not Resolved]
  - Left ventricular dysfunction [Unknown]

NARRATIVE: CASE EVENT DATE: 20160330
